FAERS Safety Report 10246910 (Version 1)
Quarter: 2014Q2

REPORT INFORMATION
  Report Type: Spontaneous
  Country: US (occurrence: None)
  Receive Date: 20140617
  Receipt Date: 20140617
  Transmission Date: 20141212
  Serious: No
  Sender: FDA-Public Use
  Company Number: None

PATIENT
  Age: 66 Year
  Sex: Male
  Weight: 113 kg

DRUGS (1)
  1. FLUNISOLIDE [Suspect]
     Indication: SINUSITIS
     Dosage: 50 MCG  BID  NASAL
     Route: 045
     Dates: start: 20140220, end: 20140221

REACTIONS (3)
  - Pulmonary congestion [None]
  - Anaphylactic reaction [None]
  - Throat tightness [None]
